FAERS Safety Report 19441229 (Version 1)
Quarter: 2021Q2

REPORT INFORMATION
  Report Type: Spontaneous
  Country: US (occurrence: US)
  Receive Date: 20210617
  Receipt Date: 20210617
  Transmission Date: 20210717
  Serious: Yes (Death)
  Sender: FDA-Public Use
  Company Number: None

PATIENT
  Age: 26 Year
  Sex: Male
  Weight: 78.75 kg

DRUGS (3)
  1. GREEN VEIN MAENG DA KRATOM [Suspect]
     Active Substance: HERBALS\MITRAGYNINE
     Indication: INSOMNIA
  2. GREEN VEIN MAENG DA KRATOM [Suspect]
     Active Substance: HERBALS\MITRAGYNINE
     Indication: ANXIETY
  3. GREEN VEIN MAENG DA KRATOM [Suspect]
     Active Substance: HERBALS\MITRAGYNINE
     Indication: DEPRESSION

REACTIONS (1)
  - Death [None]

NARRATIVE: CASE EVENT DATE: 20210221
